FAERS Safety Report 5736162-3 (Version None)
Quarter: 2008Q2

REPORT INFORMATION
  Report Type: 
  Country: None (occurrence: None)
  Receive Date: 20080509
  Receipt Date: 20080509
  Transmission Date: 20081010
  Serious: Yes (Hospitalization)
  Sender: FDA-Public Use
  Company Number: None

PATIENT
  Age: 57 Year
  Sex: Male
  Weight: 96 kg

DRUGS (1)
  1. GENTAMICIN [Suspect]
     Dosage: 240 MG EVERY DAY IV
     Route: 042
     Dates: start: 20080220, end: 20080310

REACTIONS (1)
  - RENAL FAILURE ACUTE [None]
